FAERS Safety Report 5737639-7 (Version None)
Quarter: 2008Q2

REPORT INFORMATION
  Report Type: 
  Country: None (occurrence: None)
  Receive Date: 20080512
  Receipt Date: 20080512
  Transmission Date: 20081010
  Serious: Yes (Other)
  Sender: FDA-Public Use
  Company Number: None

PATIENT
  Age: 58 Year
  Sex: Female
  Weight: 54.4316 kg

DRUGS (1)
  1. DIGITEK  .25MG  BERTK  62794-0146-01 [Suspect]
     Indication: ATRIAL FIBRILLATION
     Dosage: 1 TABLET -250 NCG-  DAILY PO
     Route: 048
     Dates: start: 20080202, end: 20080427

REACTIONS (3)
  - COLITIS [None]
  - DIARRHOEA [None]
  - PHARMACEUTICAL PRODUCT COMPLAINT [None]
